FAERS Safety Report 10252256 (Version 1)
Quarter: 2014Q2

REPORT INFORMATION
  Report Type: Spontaneous
  Country: US (occurrence: US)
  Receive Date: 20140623
  Receipt Date: 20140623
  Transmission Date: 20141212
  Serious: Yes (Life-Threatening, Hospitalization, Other)
  Sender: FDA-Public Use
  Company Number: US-ROCHE-1418176

PATIENT
  Age: 68 Year
  Sex: Female

DRUGS (20)
  1. CELLCEPT [Suspect]
     Indication: ARTHRALGIA
     Route: 065
  2. FLOLAN [Suspect]
     Indication: COR PULMONALE CHRONIC
     Dosage: 27 NG/KG/MIN
     Route: 065
     Dates: start: 20100525
  3. FLOLAN [Suspect]
     Indication: PULMONARY HYPERTENSION
     Dosage: 28 NG/KG/MIN
     Route: 042
     Dates: start: 20120201
  4. FLOLAN [Suspect]
     Indication: POLYMYOSITIS
     Dosage: 28 NG/KG/MIN
     Route: 042
     Dates: start: 20110314
  5. PLAQUENIL [Suspect]
     Indication: PRODUCT USED FOR UNKNOWN INDICATION
     Route: 065
  6. LASIX [Concomitant]
  7. CLARITIN [Concomitant]
  8. OCUVITE PRESERVISION [Concomitant]
  9. POTASSIUM CHLORIDE [Concomitant]
  10. ADCIRCA [Concomitant]
  11. TRACLEER [Concomitant]
  12. EPOPROSTENOL SODIUM [Concomitant]
  13. ASPIRIN [Concomitant]
  14. FLUTICASONE PROPIONATE [Concomitant]
  15. TRAMADOL HCL [Concomitant]
  16. TRIAMCINOLONE ACETONIDE [Concomitant]
  17. ZOLPIDEM TARTRATE [Concomitant]
  18. PREDNISONE [Concomitant]
  19. IMURAN [Concomitant]
  20. BABY ASPIRIN [Concomitant]

REACTIONS (15)
  - Blood bilirubin increased [Unknown]
  - Liver function test abnormal [Unknown]
  - Hypertension [Unknown]
  - Tachycardia [Unknown]
  - Asthenia [Recovered/Resolved]
  - Hypoaesthesia [Recovered/Resolved]
  - Loss of consciousness [Recovered/Resolved]
  - Diarrhoea [Unknown]
  - Flushing [Unknown]
  - Oedema peripheral [Unknown]
  - Right ventricular heave [Unknown]
  - Upper respiratory tract infection [Unknown]
  - Left ventricular dysfunction [Recovering/Resolving]
  - Ejection fraction decreased [Recovering/Resolving]
  - Catheterisation cardiac [Unknown]
